FAERS Safety Report 8054822-9 (Version None)
Quarter: 2012Q1

REPORT INFORMATION
  Report Type: 
  Country: None (occurrence: None)
  Receive Date: 20120112
  Receipt Date: 20111228
  Transmission Date: 20120608
  Serious: Yes (Death)
  Sender: FDA-Public Use
  Company Number: 2012LB0004

PATIENT
  Age: 18 Year
  Sex: Male

DRUGS (1)
  1. ORFADIN [Suspect]
     Indication: TYROSINAEMIA
     Dates: start: 20000101

REACTIONS (5)
  - GASTRIC NEOPLASM [None]
  - GASTRIC DISORDER [None]
  - OBSTRUCTION GASTRIC [None]
  - IRRITABILITY [None]
  - GENERAL PHYSICAL HEALTH DETERIORATION [None]
